FAERS Safety Report 9611207 (Version 2)
Quarter: 2013Q4

REPORT INFORMATION
  Report Type: Spontaneous
  Country: AU (occurrence: AU)
  Receive Date: 20131009
  Receipt Date: 20131014
  Transmission Date: 20140711
  Serious: No
  Sender: FDA-Public Use
  Company Number: AU-ABBVIE-13P-008-1153415-00

PATIENT
  Sex: Male

DRUGS (2)
  1. SODIUM VALPROATE [Suspect]
     Indication: PRODUCT USED FOR UNKNOWN INDICATION
  2. MIRTAZEPINE TEVA [Concomitant]
     Indication: ANTIDEPRESSANT THERAPY

REACTIONS (2)
  - Sedation [Unknown]
  - Hypernatraemia [Unknown]
